FAERS Safety Report 15366253 (Version 1)
Quarter: 2018Q3

REPORT INFORMATION
  Report Type: Spontaneous
  Country: FR (occurrence: FR)
  Receive Date: 20180910
  Receipt Date: 20180910
  Transmission Date: 20181010
  Serious: Yes (Hospitalization)
  Sender: FDA-Public Use
  Company Number: FR-MYLANLABS-2018M1065753

PATIENT
  Age: 17 Year
  Sex: Male

DRUGS (7)
  1. VANCOMYCIN [Suspect]
     Active Substance: VANCOMYCIN
     Indication: PRODUCT USED FOR UNKNOWN INDICATION
     Dosage: 1 MG/0.1 ML
     Route: 050
  2. CEFTAZIDIME. [Suspect]
     Active Substance: CEFTAZIDIME
     Indication: PANOPHTHALMITIS
     Dosage: 2.25 MG/0.1 ML
     Route: 050
  3. GENTAMICIN. [Suspect]
     Active Substance: GENTAMICIN
     Indication: PANOPHTHALMITIS
     Dosage: 8 ?G, QD
     Route: 057
     Dates: start: 20130531
  4. GENTAMICIN. [Suspect]
     Active Substance: GENTAMICIN
     Dosage: 6 MG/KG, UNK
     Route: 065
  5. CEFTAZIDIME. [Suspect]
     Active Substance: CEFTAZIDIME
     Dosage: UNK, QD
     Route: 057
  6. METRONIDAZOLE. [Suspect]
     Active Substance: METRONIDAZOLE
     Indication: PANOPHTHALMITIS
     Dosage: TIME INTERVAL: 0.25 D
     Route: 065
     Dates: start: 20130531
  7. IMIPENEM [Suspect]
     Active Substance: IMIPENEM
     Indication: PANOPHTHALMITIS
     Dosage: 50 MG/KG, Q6H
     Route: 065
     Dates: start: 20130531

REACTIONS (2)
  - Drug ineffective [Recovered/Resolved with Sequelae]
  - Blindness [Recovered/Resolved with Sequelae]
